FAERS Safety Report 15356266 (Version 1)
Quarter: 2018Q3

REPORT INFORMATION
  Report Type: Spontaneous
  Country: GB (occurrence: GB)
  Receive Date: 20180906
  Receipt Date: 20180906
  Transmission Date: 20181010
  Serious: Yes (Other)
  Sender: FDA-Public Use
  Company Number: GB-TEVA-2018-GB-951908

PATIENT
  Age: 61 Year
  Sex: Female
  Weight: 101.6 kg

DRUGS (2)
  1. PARACETAMOL [Concomitant]
     Active Substance: ACETAMINOPHEN
     Route: 065
  2. GABAPENTIN. [Suspect]
     Active Substance: GABAPENTIN
     Indication: PAIN
     Route: 048
     Dates: start: 20180501, end: 20180814

REACTIONS (3)
  - Gingival bleeding [Unknown]
  - Tooth fracture [Unknown]
  - Tooth loss [Unknown]
